FAERS Safety Report 4535034-X (Version None)
Quarter: 2004Q4

REPORT INFORMATION
  Report Type: 
  Country: None (occurrence: None)
  Receive Date: 20041214
  Receipt Date: 20041105
  Transmission Date: 20050328
  Serious: Yes (Hospitalization, Other)
  Sender: FDA-Public Use
  Company Number: 2004090171

PATIENT
  Age: 87 Year
  Sex: Male

DRUGS (7)
  1. BEXTRA [Suspect]
     Indication: ARTHRALGIA
     Dosage: 40 MG (20 MG, 2 IN 1 D), ORAL
     Route: 048
     Dates: start: 20040701, end: 20041103
  2. WARFARIIN SODIUM (WARFARIN SODIUM) [Concomitant]
  3. FINASTERIDE [Concomitant]
  4. FUROSEMIDE [Concomitant]
  5. LISINOPRIL [Concomitant]
  6. ATENOLOL [Concomitant]
  7. ACETAMINOPHEN [Concomitant]

REACTIONS (3)
  - HAEMATEMESIS [None]
  - HAEMATOCHEZIA [None]
  - ULCER HAEMORRHAGE [None]
